FAERS Safety Report 6458634-9 (Version None)
Quarter: 2009Q4

REPORT INFORMATION
  Report Type: 
  Country: None (occurrence: None)
  Receive Date: 20091127
  Receipt Date: 20091113
  Transmission Date: 20100525
  Serious: Yes (Other)
  Sender: FDA-Public Use
  Company Number: GB-ELI_LILLY_AND_COMPANY-GB200911004132

PATIENT
  Age: 11 Year
  Sex: Female
  Weight: 34.3 kg

DRUGS (2)
  1. STRATTERA [Suspect]
     Indication: ATTENTION DEFICIT/HYPERACTIVITY DISORDER
     Dosage: UNK, UNKNOWN
     Route: 065
     Dates: start: 20080601
  2. STRATTERA [Suspect]
     Dosage: 58 MG, DAILY (1/D) 40MG MORNING AND 18 MG IN THE EVENING

REACTIONS (1)
  - WOLFF-PARKINSON-WHITE SYNDROME [None]
